FAERS Safety Report 23922085 (Version 1)
Quarter: 2024Q2

REPORT INFORMATION
  Report Type: Spontaneous
  Country: IT (occurrence: IT)
  Receive Date: 20240531
  Receipt Date: 20240531
  Transmission Date: 20240716
  Serious: Yes (Other)
  Sender: FDA-Public Use
  Company Number: None

PATIENT
  Age: 55 Year
  Sex: Male
  Weight: 90 kg

DRUGS (1)
  1. GLECAPREVIR\PIBRENTASVIR [Suspect]
     Active Substance: GLECAPREVIR\PIBRENTASVIR
     Indication: Product used for unknown indication
     Dosage: TIME INTERVAL: 0.33333333 DAYS: THREE TABLETS A DAY FOR TWO MONTHS
     Route: 048
     Dates: start: 20231220, end: 20240214

REACTIONS (3)
  - Tooth loss [Recovered/Resolved with Sequelae]
  - Gingivitis [Recovered/Resolved with Sequelae]
  - Periodontitis [Recovered/Resolved with Sequelae]

NARRATIVE: CASE EVENT DATE: 20231227
